FAERS Safety Report 18694664 (Version 1)
Quarter: 2021Q1

REPORT INFORMATION
  Report Type: Spontaneous
  Country: US (occurrence: US)
  Receive Date: 20210104
  Receipt Date: 20210104
  Transmission Date: 20210419
  Serious: No
  Sender: FDA-Public Use
  Company Number: US-TARO-2020TAR01234

PATIENT
  Sex: Female

DRUGS (10)
  1. HYDROCORTISONE. [Suspect]
     Active Substance: HYDROCORTISONE
     Indication: FUNGAL SKIN INFECTION
     Dosage: UNK
     Route: 065
  2. TERBINAFINE. [Suspect]
     Active Substance: TERBINAFINE
     Indication: TINEA PEDIS
  3. CERAVE (DIMETHICONE) [Suspect]
     Active Substance: DIMETHICONE
     Indication: TINEA PEDIS
  4. TERBINAFINE. [Suspect]
     Active Substance: TERBINAFINE
     Indication: FUNGAL SKIN INFECTION
     Dosage: UNK
     Route: 065
  5. HYDROCORTISONE. [Suspect]
     Active Substance: HYDROCORTISONE
     Indication: TINEA PEDIS
  6. LAMISIL AT [Suspect]
     Active Substance: TERBINAFINE HYDROCHLORIDE
     Indication: TINEA PEDIS
  7. LAMISIL AT [Suspect]
     Active Substance: TERBINAFINE HYDROCHLORIDE
     Indication: FUNGAL SKIN INFECTION
     Dosage: ATHLETE^S FOOT SPRAY
     Route: 065
  8. CERAVE (DIMETHICONE) [Suspect]
     Active Substance: DIMETHICONE
     Indication: FUNGAL SKIN INFECTION
     Dosage: EMOLLIENTS AND PROTECTIVES
     Route: 065
  9. TERBINAFINE. [Suspect]
     Active Substance: TERBINAFINE
     Indication: FUNGAL SKIN INFECTION
     Dosage: BOTTLE SPRAY DEVICE
     Route: 065
  10. TERBINAFINE. [Suspect]
     Active Substance: TERBINAFINE
     Indication: TINEA PEDIS

REACTIONS (4)
  - Erythema [Unknown]
  - Rash [Unknown]
  - Dry skin [Unknown]
  - Drug ineffective [Unknown]
